FAERS Safety Report 19920105 (Version 4)
Quarter: 2022Q2

REPORT INFORMATION
  Report Type: Spontaneous
  Country: JP (occurrence: JP)
  Receive Date: 20211005
  Receipt Date: 20220620
  Transmission Date: 20220721
  Serious: Yes (Death)
  Sender: FDA-Public Use
  Company Number: JP-ELI_LILLY_AND_COMPANY-JP202110000546

PATIENT
  Age: 74 Year
  Sex: Female
  Weight: 67 kg

DRUGS (15)
  1. ADCIRCA [Suspect]
     Active Substance: TADALAFIL
     Indication: Pulmonary arterial hypertension
     Dosage: 20 MG, DAILY
     Route: 065
     Dates: start: 20190515, end: 20210809
  2. UPTRAVI [Suspect]
     Active Substance: SELEXIPAG
     Indication: Pulmonary arterial hypertension
     Dosage: 0.2 MG, BID
     Route: 048
     Dates: start: 20190603, end: 20190609
  3. UPTRAVI [Suspect]
     Active Substance: SELEXIPAG
     Dosage: 0.4 MG, BID
     Route: 048
     Dates: start: 20190610, end: 20190616
  4. UPTRAVI [Suspect]
     Active Substance: SELEXIPAG
     Dosage: 0.6 MG, BID
     Route: 048
     Dates: start: 20190617, end: 20190703
  5. UPTRAVI [Suspect]
     Active Substance: SELEXIPAG
     Dosage: 0.8 MG, BID
     Route: 048
     Dates: start: 20190704, end: 20190717
  6. UPTRAVI [Suspect]
     Active Substance: SELEXIPAG
     Dosage: 1 MG, BID
     Route: 048
     Dates: start: 20190718, end: 20190911
  7. UPTRAVI [Suspect]
     Active Substance: SELEXIPAG
     Dosage: 1.2 MG, BID
     Route: 048
     Dates: start: 20190912, end: 20191102
  8. UPTRAVI [Suspect]
     Active Substance: SELEXIPAG
     Dosage: 1.4 MG, DAILY
     Route: 048
     Dates: start: 20191103, end: 20210809
  9. OPSUMIT [Suspect]
     Active Substance: MACITENTAN
     Indication: Pulmonary arterial hypertension
     Dosage: 10 MG, DAILY
     Route: 065
     Dates: start: 20210624, end: 20210809
  10. NESINA [Concomitant]
     Active Substance: ALOGLIPTIN BENZOATE
     Indication: Diabetes mellitus
     Dosage: 12.5 MG, DAILY
     Route: 065
  11. WARFARIN POTASSIUM [Concomitant]
     Active Substance: WARFARIN POTASSIUM
     Indication: Product used for unknown indication
     Dosage: 1.5 MG, DAILY
     Route: 065
     Dates: end: 20210303
  12. AMLODIPINE BESYLATE [Concomitant]
     Active Substance: AMLODIPINE BESYLATE
     Indication: Product used for unknown indication
     Dosage: 2.5 MG, DAILY
     Route: 065
  13. ALUMINUM SILICATE [Concomitant]
     Active Substance: ALUMINUM SILICATE
     Indication: Diarrhoea
     Dosage: 1.5 G, DAILY
     Route: 065
     Dates: start: 20190612
  14. LOPERAMIDE HYDROCHLORIDE [Concomitant]
     Active Substance: LOPERAMIDE HYDROCHLORIDE
     Indication: Diarrhoea
     Dosage: 1 MG, UNKNOWN
     Route: 065
     Dates: start: 20190625
  15. MORPHINE HYDROCHLORIDE [Concomitant]
     Active Substance: MORPHINE HYDROCHLORIDE
     Indication: Product used for unknown indication

REACTIONS (2)
  - Cardiac failure [Fatal]
  - Pulmonary arterial hypertension [Fatal]

NARRATIVE: CASE EVENT DATE: 20210811
